FAERS Safety Report 9175299 (Version 1)
Quarter: 2013Q1

REPORT INFORMATION
  Report Type: Spontaneous
  Country: IT (occurrence: IT)
  Receive Date: 20130320
  Receipt Date: 20130320
  Transmission Date: 20140127
  Serious: Yes (Hospitalization)
  Sender: FDA-Public Use
  Company Number: IT-BRISTOL-MYERS SQUIBB COMPANY-17467960

PATIENT
  Age: 69 Year
  Sex: Male

DRUGS (2)
  1. COUMADIN TABS 5 MG [Suspect]
     Indication: ATRIAL FIBRILLATION
     Dosage: DOSAGE:1 UNIT
     Route: 048
     Dates: start: 20130204, end: 20130216
  2. DUOPLAVIN [Suspect]
     Indication: ANGIOPLASTY
     Route: 048
     Dates: start: 20130204, end: 20130216

REACTIONS (6)
  - Muscle haemorrhage [Recovered/Resolved]
  - Anaemia [Recovered/Resolved]
  - Chest pain [Recovered/Resolved]
  - Haematuria [Recovered/Resolved]
  - Renal failure acute [Recovered/Resolved]
  - Hypotension [Recovered/Resolved]
